FAERS Safety Report 5221359-1 (Version None)
Quarter: 2007Q1

REPORT INFORMATION
  Report Type: 
  Country: None (occurrence: None)
  Receive Date: 20061201
  Receipt Date: 20060708
  Transmission Date: 20070707
  Serious: No
  Sender: FDA-Public Use
  Company Number: 2006PV017123

PATIENT
  Age: 63 Year
  Sex: Female

DRUGS (4)
  1. BYETTA [Suspect]
     Indication: DIABETES MELLITUS NON-INSULIN-DEPENDENT
     Dosage: SEE IMAGE
     Route: 058
     Dates: end: 20060101
  2. BYETTA [Suspect]
     Indication: DIABETES MELLITUS NON-INSULIN-DEPENDENT
     Dosage: SEE IMAGE
     Route: 058
     Dates: start: 20060101
  3. AMARYL [Concomitant]
  4. METFORMIN HCL [Concomitant]

REACTIONS (7)
  - DEHYDRATION [None]
  - FALL [None]
  - LOWER LIMB FRACTURE [None]
  - NAUSEA [None]
  - RENAL IMPAIRMENT [None]
  - VITAMIN D DEFICIENCY [None]
  - VOMITING [None]
